FAERS Safety Report 5397925-X (Version None)
Quarter: 2007Q3

REPORT INFORMATION
  Report Type: 
  Country: None (occurrence: None)
  Receive Date: 20070726
  Receipt Date: 20070716
  Transmission Date: 20080115
  Serious: Yes (Hospitalization)
  Sender: FDA-Public Use
  Company Number: US-KINGPHARMUSA00001-K200700902

PATIENT

DRUGS (5)
  1. TIGAN [Suspect]
     Dosage: 100 MG, SINGLE
     Route: 054
     Dates: start: 20070215, end: 20070215
  2. PEPTOBISMOL [Concomitant]
  3. TYLENOL /00020001/ [Concomitant]
  4. PULMICORT [Concomitant]
  5. ALBUTEROL [Concomitant]

REACTIONS (9)
  - ACIDOSIS [None]
  - DIARRHOEA [None]
  - GASTROENTERITIS [None]
  - LETHARGY [None]
  - NAUSEA [None]
  - SOMNOLENCE [None]
  - SYNCOPE [None]
  - UNEVALUABLE EVENT [None]
  - VOMITING [None]
